FAERS Safety Report 22292745 (Version 1)
Quarter: 2023Q2

REPORT INFORMATION
  Report Type: Other
  Country: IN (occurrence: None)
  Receive Date: 20230508
  Receipt Date: 20230508
  Transmission Date: 20230721
  Serious: Yes (Hospitalization)
  Sender: FDA-Public Use
  Company Number: IN-ROCHE-3302423

PATIENT
  Age: 53 Year
  Sex: Male
  Weight: 64.2 kg

DRUGS (1)
  1. TECENTRIQ [Suspect]
     Active Substance: ATEZOLIZUMAB
     Indication: Small cell lung cancer
     Dosage: INTERVAL 24 DAYS, ONGOING YES
     Route: 042
     Dates: start: 20211113

REACTIONS (2)
  - Malaise [Unknown]
  - Seizure [Unknown]
